FAERS Safety Report 9085404 (Version 1)
Quarter: 2013Q1

REPORT INFORMATION
  Report Type: Report from Study
  Country: US (occurrence: US)
  Receive Date: 20130131
  Receipt Date: 20130131
  Transmission Date: 20140127
  Serious: No
  Sender: FDA-Public Use
  Company Number: US-ABBOTT-12P-163-0998592-00

PATIENT
  Age: 37 Year
  Sex: Female

DRUGS (12)
  1. HUMIRA [Suspect]
     Indication: CROHN^S DISEASE
     Dosage: LOADING DOSE
     Dates: start: 20121002, end: 20121002
  2. HUMIRA [Suspect]
     Dates: start: 20121016
  3. SINGULAIR [Concomitant]
     Indication: ASTHMA
     Dosage: 10MG DAILY
     Route: 048
  4. ZYRTEC [Concomitant]
     Indication: HYPERSENSITIVITY
     Dosage: 20MG DAILY
     Route: 048
  5. HCTZ [Concomitant]
     Indication: BLOOD PRESSURE
     Dosage: 10MG DAILY
     Route: 048
  6. LISINOPRIL [Concomitant]
     Indication: BLOOD PRESSURE
     Dosage: 40MG DAILY
     Route: 048
  7. PROAIR [Concomitant]
     Indication: ASTHMA
     Dosage: 2 PUFFS AS NEEDED
     Route: 055
  8. SYMBICORT [Concomitant]
     Dosage: 2 PUFFS ONCE DAILY AS NEEDED
     Route: 055
  9. IMITREX [Concomitant]
     Indication: MIGRAINE
     Dosage: AS NEEDED
     Route: 048
  10. VITAMIN B12 [Concomitant]
     Indication: VITAMIN B12 DECREASED
     Dosage: MONTHLY
  11. VITAMIN D [Concomitant]
     Indication: VITAMIN D DECREASED
     Route: 048
  12. FLINTSTONE OTC VITAMIN [Concomitant]
     Indication: VITAMIN SUPPLEMENTATION
     Dosage: 1 PILL DAILY

REACTIONS (3)
  - Blood pressure increased [Unknown]
  - Injection site pain [Recovered/Resolved]
  - Heart rate increased [Unknown]
